FAERS Safety Report 24800309 (Version 1)
Quarter: 2025Q1

REPORT INFORMATION
  Report Type: Spontaneous
  Country: GB (occurrence: GB)
  Receive Date: 20250102
  Receipt Date: 20250102
  Transmission Date: 20250408
  Serious: Yes (Hospitalization, Disabling, Other)
  Sender: ELI LILLY AND COMPANY
  Company Number: None

PATIENT
  Age: 43 Year
  Sex: Female
  Weight: 67 kg

DRUGS (4)
  1. ABEMACICLIB [Suspect]
     Active Substance: ABEMACICLIB
     Indication: Adjuvant therapy
     Dosage: 150 MG, BID
     Route: 065
     Dates: start: 20241002, end: 20241213
  2. GOSERELIN [Concomitant]
     Active Substance: GOSERELIN
     Indication: Adjuvant therapy
  3. EXEMESTANE [Concomitant]
     Active Substance: EXEMESTANE
     Indication: Adjuvant therapy
  4. FLUOXETINE [Concomitant]
     Active Substance: FLUOXETINE HYDROCHLORIDE
     Indication: Adjuvant therapy

REACTIONS (5)
  - Cardiomegaly [Unknown]
  - Cardiac failure [Not Recovered/Not Resolved]
  - Pneumonitis [Unknown]
  - Arthralgia [Unknown]
  - Dyspnoea [Unknown]

NARRATIVE: CASE EVENT DATE: 20241212
